FAERS Safety Report 23070522 (Version 2)
Quarter: 2023Q4

REPORT INFORMATION
  Report Type: Spontaneous
  Country: VN (occurrence: VN)
  Receive Date: 20231016
  Receipt Date: 20231110
  Transmission Date: 20240110
  Serious: Yes (Hospitalization)
  Sender: FDA-Public Use
  Company Number: VN-002147023-NVSC2023VN216441

PATIENT
  Age: 58 Year
  Sex: Female

DRUGS (3)
  1. CISPLATIN [Suspect]
     Active Substance: CISPLATIN
     Indication: Breast cancer metastatic
     Dosage: UNK
     Route: 065
     Dates: end: 202205
  2. DOCETAXEL [Suspect]
     Active Substance: DOCETAXEL\DOCETAXEL ANHYDROUS
     Indication: Breast cancer metastatic
     Dosage: UNK
     Route: 065
     Dates: end: 202205
  3. TAMOXIFEN [Concomitant]
     Active Substance: TAMOXIFEN
     Indication: Product used for unknown indication
     Dosage: UNK
     Route: 065
     Dates: start: 201806, end: 202112

REACTIONS (11)
  - Breast cancer recurrent [Unknown]
  - Metastases to lymph nodes [Unknown]
  - Malignant neoplasm progression [Unknown]
  - Lymphadenopathy [Unknown]
  - Pulmonary mass [Unknown]
  - Vocal cord paralysis [Unknown]
  - Fatigue [Unknown]
  - Eyelid ptosis [Unknown]
  - Dysphonia [Recovering/Resolving]
  - Dysphagia [Recovering/Resolving]
  - Chest wall mass [Recovering/Resolving]
